FAERS Safety Report 18968561 (Version 1)
Quarter: 2021Q1

REPORT INFORMATION
  Report Type: Spontaneous
  Country: US (occurrence: US)
  Receive Date: 20210303
  Receipt Date: 20210303
  Transmission Date: 20210420
  Serious: Yes (Death)
  Sender: FDA-Public Use
  Company Number: None

PATIENT
  Age: 72 Year
  Sex: Female
  Weight: 78.02 kg

DRUGS (2)
  1. IVERMECTIN 12 MG [Suspect]
     Active Substance: IVERMECTIN
     Dosage: ?          OTHER FREQUENCY:Q48H; X2?
     Dates: start: 20201210, end: 20201212
  2. REMDESIVIR 100MG [Suspect]
     Active Substance: REMDESIVIR
     Dosage: ?          OTHER DOSE:200MG X1, 100MG;?
     Route: 042
     Dates: start: 20201205, end: 20201209

REACTIONS (1)
  - COVID-19 [None]

NARRATIVE: CASE EVENT DATE: 20201216
